FAERS Safety Report 13532023 (Version 1)
Quarter: 2017Q2

REPORT INFORMATION
  Report Type: Spontaneous
  Country: US (occurrence: US)
  Receive Date: 20170510
  Receipt Date: 20170510
  Transmission Date: 20170830
  Serious: Yes (Other)
  Sender: FDA-Public Use
  Company Number: US-GLAXOSMITHKLINE-US2017066666

PATIENT
  Age: 89 Year
  Sex: Male

DRUGS (1)
  1. VOLTAREN [Suspect]
     Active Substance: DICLOFENAC SODIUM
     Indication: TRIGGER FINGER
     Dosage: UNK

REACTIONS (4)
  - Off label use [Unknown]
  - Glaucoma [Not Recovered/Not Resolved]
  - Arthritis [Not Recovered/Not Resolved]
  - Local swelling [Not Recovered/Not Resolved]
